FAERS Safety Report 10186635 (Version 1)
Quarter: 2014Q2

REPORT INFORMATION
  Report Type: Spontaneous
  Country: US (occurrence: US)
  Receive Date: 20140521
  Receipt Date: 20140521
  Transmission Date: 20141212
  Serious: Yes (Hospitalization)
  Sender: FDA-Public Use
  Company Number: US-BAXTER-2014BAX024597

PATIENT
  Age: 48 Year
  Sex: Female
  Weight: 72.64 kg

DRUGS (14)
  1. GAMMAGARD LIQUID [Suspect]
     Indication: SELECTIVE IGG SUBCLASS DEFICIENCY
     Dosage: EACH DOSE 3 BOTTLES (WEEKLY TOTAL 9 BOTTLES)
     Route: 042
     Dates: start: 201309, end: 201309
  2. GAMMAGARD LIQUID [Suspect]
     Route: 042
     Dates: start: 201310, end: 201310
  3. GAMMAGARD LIQUID [Suspect]
     Route: 042
     Dates: start: 20131119, end: 20131119
  4. GAMMAGARD LIQUID [Suspect]
     Dosage: TOTAL MONTHLY DOSE DIVIDED INTO 3 SMALLER DOSES EVERY 10 DAYS
     Route: 042
     Dates: start: 201312, end: 201312
  5. DYCLOPINE [Concomitant]
     Indication: PREMEDICATION
     Dosage: 30 MG (3-10 MG) BEFORE GGL INFUSION
     Route: 048
     Dates: start: 201310
  6. METHOTREXATE [Concomitant]
     Indication: PREMEDICATION
     Dosage: BEFORE GGL INFUSION
     Route: 048
     Dates: start: 201312
  7. METHOTREXATE [Concomitant]
     Dates: start: 201312, end: 201312
  8. ZOFRAN [Concomitant]
     Indication: PREMEDICATION
     Route: 048
     Dates: start: 2010
  9. ZOFRAN [Concomitant]
     Dosage: BEFORE GGL INFUSION
     Route: 048
  10. PHENERGAN [Concomitant]
     Indication: PREMEDICATION
     Route: 048
     Dates: start: 2010
  11. PHENERGAN [Concomitant]
     Dosage: BEFORE GGL INFUSION
     Route: 048
  12. PERCOCET [Concomitant]
     Indication: PREMEDICATION
     Dosage: 5/325 MG
     Route: 048
     Dates: start: 2010
  13. PERCOCET [Concomitant]
     Dosage: 5/325 MG, BEFORE GGL INFUSION (REPEAT AS NEEDED X1)
     Route: 048
  14. ATENOLOL [Concomitant]
     Indication: PRODUCT USED FOR UNKNOWN INDICATION
     Route: 048
     Dates: start: 2010

REACTIONS (14)
  - Headache [Not Recovered/Not Resolved]
  - Abdominal pain [Not Recovered/Not Resolved]
  - Vomiting [Not Recovered/Not Resolved]
  - Diarrhoea [Recovered/Resolved]
  - Photophobia [Recovered/Resolved]
  - Swelling [Recovered/Resolved]
  - Electrolyte imbalance [Recovered/Resolved]
  - Tremor [Recovered/Resolved]
  - Chills [Recovered/Resolved]
  - Pyrexia [Recovered/Resolved]
  - Chest pain [Recovered/Resolved]
  - Rash papular [Recovered/Resolved]
  - Blood pressure increased [Recovered/Resolved]
  - Tachycardia [Recovered/Resolved]
